FAERS Safety Report 10809274 (Version 1)
Quarter: 2015Q1

REPORT INFORMATION
  Report Type: Spontaneous
  Country: US (occurrence: None)
  Receive Date: 20150213
  Receipt Date: 20150213
  Transmission Date: 20150721
  Serious: Yes (Hospitalization, Disabling, Other)
  Sender: FDA-Public Use
  Company Number: None

PATIENT
  Age: 67 Year
  Sex: Female
  Weight: 115 kg

DRUGS (11)
  1. KENALOG [Suspect]
     Active Substance: TRIAMCINOLONE ACETONIDE
     Indication: MUSCULOSKELETAL PAIN
     Dates: start: 20100908, end: 20100908
  2. MULTIVITAMIN (CENTRUMSILVER) B6 [Concomitant]
  3. LEVETIRACETAM. [Concomitant]
     Active Substance: LEVETIRACETAM
  4. MAGNESIUM [Concomitant]
     Active Substance: MAGNESIUM
  5. METOPROLOL [Concomitant]
     Active Substance: METOPROLOL
  6. KENALOG [Suspect]
     Active Substance: TRIAMCINOLONE ACETONIDE
     Indication: BACK PAIN
     Dates: start: 20100908, end: 20100908
  7. KENALOG [Suspect]
     Active Substance: TRIAMCINOLONE ACETONIDE
     Indication: NECK PAIN
     Dates: start: 20100908, end: 20100908
  8. CLONAZEPAM. [Concomitant]
     Active Substance: CLONAZEPAM
  9. VITAMIN D3 [Concomitant]
     Active Substance: CHOLECALCIFEROL
  10. LEVOTHYROXINE [Concomitant]
     Active Substance: LEVOTHYROXINE
  11. SIMVASTATIN. [Concomitant]
     Active Substance: SIMVASTATIN

REACTIONS (9)
  - Emotional distress [None]
  - Back pain [None]
  - Seizure [None]
  - Fatigue [None]
  - Headache [None]
  - Fall [None]
  - Dyskinesia [None]
  - Muscle rigidity [None]
  - Speech disorder [None]

NARRATIVE: CASE EVENT DATE: 20100908
